FAERS Safety Report 15830786 (Version 1)
Quarter: 2019Q1

REPORT INFORMATION
  Report Type: Spontaneous
  Country: PH (occurrence: PH)
  Receive Date: 20190116
  Receipt Date: 20190116
  Transmission Date: 20190417
  Serious: Yes (Other)
  Sender: FDA-Public Use
  Company Number: PH-TWI PHARMACEUTICAL, INC-2019SCTW000001

PATIENT

DRUGS (1)
  1. SEVELAMER CARBONATE TABLETS, 800 MG [Suspect]
     Active Substance: SEVELAMER CARBONATE
     Indication: HYPERPHOSPHATAEMIA
     Dosage: 800 MG
     Route: 065

REACTIONS (3)
  - Asthenia [Unknown]
  - Palpitations [Unknown]
  - Abdominal discomfort [Unknown]
